FAERS Safety Report 9736398 (Version 2)
Quarter: 2014Q1

REPORT INFORMATION
  Report Type: Spontaneous
  Country: US (occurrence: US)
  Receive Date: 20131206
  Receipt Date: 20140206
  Transmission Date: 20141002
  Serious: No
  Sender: FDA-Public Use
  Company Number: US-009507513-1310USA007022

PATIENT
  Age: 19 Year
  Sex: Female
  Weight: 76.19 kg

DRUGS (1)
  1. NEXPLANON [Suspect]
     Indication: CONTRACEPTION
     Dosage: UNK
     Dates: start: 20131015

REACTIONS (5)
  - Device difficult to use [Recovered/Resolved]
  - Keloid scar [Unknown]
  - Device deployment issue [Recovered/Resolved]
  - Implant site swelling [Recovered/Resolved]
  - Influenza [Recovered/Resolved]
